FAERS Safety Report 9398548 (Version 2)
Quarter: 2013Q3

REPORT INFORMATION
  Report Type: Spontaneous
  Country: US (occurrence: US)
  Receive Date: 20130712
  Receipt Date: 20130820
  Transmission Date: 20140515
  Serious: Yes (Death, Hospitalization, Other)
  Sender: FDA-Public Use
  Company Number: US-BRISTOL-MYERS SQUIBB COMPANY-19083344

PATIENT
  Age: 64 Year
  Sex: Female

DRUGS (12)
  1. ORENCIA [Suspect]
  2. ENBREL [Suspect]
  3. XELJANZ [Suspect]
  4. LISINOPRIL [Concomitant]
  5. ARAVA [Concomitant]
  6. ZOLOFT [Concomitant]
  7. VITAMIN D [Concomitant]
  8. NEXIUM [Concomitant]
  9. NUVIGIL [Concomitant]
  10. ACTEMRA [Concomitant]
  11. HYDROCODONE [Concomitant]
  12. MOTRIN [Concomitant]

REACTIONS (74)
  - Septic shock [Fatal]
  - Arthritis infective [Fatal]
  - Pain [Unknown]
  - Cerebral infarction [Unknown]
  - Cerebral thrombosis [Unknown]
  - Altered state of consciousness [Unknown]
  - Drug dependence [Unknown]
  - Mental status changes [Unknown]
  - Rheumatoid nodule [Unknown]
  - Asthenia [Unknown]
  - Acute respiratory failure [Unknown]
  - Delirium [Unknown]
  - Convulsion [Unknown]
  - Staphylococcal bacteraemia [Unknown]
  - Status epilepticus [Unknown]
  - Pulmonary valve incompetence [Unknown]
  - Cerebrovascular accident [Unknown]
  - Encephalopathy [Unknown]
  - Endocarditis bacterial [Unknown]
  - Cardiac aneurysm [Unknown]
  - Gastrointestinal haemorrhage [Unknown]
  - Mitral valve stenosis [Unknown]
  - Tricuspid valve incompetence [Unknown]
  - Septic embolus [Unknown]
  - Atrial septal defect [Unknown]
  - Osteomyelitis [Unknown]
  - Decubitus ulcer [Unknown]
  - Gliosis [Unknown]
  - Rash [Unknown]
  - Excoriation [Unknown]
  - Tenosynovitis [Unknown]
  - Aortic arteriosclerosis [Unknown]
  - Rib fracture [Unknown]
  - Osteopenia [Unknown]
  - Staphylococcal infection [Unknown]
  - Chest pain [Unknown]
  - Stress ulcer [Unknown]
  - Local swelling [Unknown]
  - Tachycardia [Unknown]
  - Erythema [Unknown]
  - Skin ulcer [Unknown]
  - Abasia [Unknown]
  - Speech disorder [Unknown]
  - Diarrhoea [Unknown]
  - Skin infection [Unknown]
  - Hypovolaemia [Unknown]
  - Gastritis [Unknown]
  - Convulsion [Unknown]
  - Arthropathy [Unknown]
  - Haemoglobin decreased [Unknown]
  - Gastrointestinal sounds abnormal [Unknown]
  - Breath sounds abnormal [Unknown]
  - Generalised oedema [Unknown]
  - Wound [Unknown]
  - Hypotonia [Unknown]
  - Mastoid effusion [Unknown]
  - Blood pressure systolic decreased [Unknown]
  - Ventricular hypertrophy [Unknown]
  - Abscess limb [Unknown]
  - Papule [Unknown]
  - Insomnia [Unknown]
  - Arthralgia [Unknown]
  - Swelling [Unknown]
  - Pleural effusion [Unknown]
  - Vomiting [Unknown]
  - Mitral valve incompetence [Unknown]
  - Generalised non-convulsive epilepsy [Unknown]
  - Drug hypersensitivity [Unknown]
  - Joint swelling [Unknown]
  - Skin ulcer [Unknown]
  - Hyponatraemia [Unknown]
  - Purulent discharge [Unknown]
  - Gout [Unknown]
  - Drug ineffective [Unknown]
